FAERS Safety Report 6020761-8 (Version None)
Quarter: 2008Q4

REPORT INFORMATION
  Report Type: 
  Country: None (occurrence: None)
  Receive Date: 20081229
  Receipt Date: 20081218
  Transmission Date: 20090506
  Serious: Yes (Other)
  Sender: FDA-Public Use
  Company Number: PHHY2008FR32560

PATIENT
  Age: 54 Year
  Sex: Female

DRUGS (1)
  1. ZOMETA [Suspect]
     Indication: BREAST CANCER METASTATIC
     Dosage: 4 MG
     Route: 042
     Dates: start: 20081217

REACTIONS (4)
  - ARTHRALGIA [None]
  - FEBRILE CONVULSION [None]
  - INFLUENZA LIKE ILLNESS [None]
  - MYALGIA [None]
